FAERS Safety Report 21947711 (Version 2)
Quarter: 2023Q1

REPORT INFORMATION
  Report Type: Report from Study
  Country: US (occurrence: US)
  Receive Date: 20230203
  Receipt Date: 20230203
  Transmission Date: 20230417
  Serious: Yes (Death, Hospitalization)
  Sender: FDA-Public Use
  Company Number: US-EXELIXIS-CABO-23060357

PATIENT
  Age: 61 Year
  Sex: Male
  Weight: 67.574 kg

DRUGS (1)
  1. CABOMETYX [Suspect]
     Active Substance: CABOZANTINIB S-MALATE
     Indication: Hepatic cancer
     Dosage: 60 MG, QD
     Route: 048

REACTIONS (5)
  - Glossitis [Unknown]
  - Oral pain [Unknown]
  - Platelet count decreased [Unknown]
  - Death [Fatal]
  - Ammonia increased [Unknown]

NARRATIVE: CASE EVENT DATE: 20230121
